FAERS Safety Report 4628197-9 (Version None)
Quarter: 2005Q2

REPORT INFORMATION
  Report Type: 
  Country: None (occurrence: None)
  Receive Date: 20050401
  Receipt Date: 20050324
  Transmission Date: 20051028
  Serious: Yes (Hospitalization)
  Sender: FDA-Public Use
  Company Number: 2004098804

PATIENT
  Age: 74 Year
  Sex: Female
  Weight: 43.5 kg

DRUGS (6)
  1. NORVASC [Suspect]
     Indication: ILL-DEFINED DISORDER
     Dosage: 5 MG (2.5 MG, 2 IN 1 D), ORAL
     Route: 048
     Dates: start: 20040420, end: 20050201
  2. GLYBURIDE [Suspect]
     Indication: ILL-DEFINED DISORDER
     Dosage: 2.5 MG (1D), ORAL
     Route: 048
  3. VOGLIBOSE (VOGLIBOSE) [Suspect]
     Indication: ILL-DEFINED DISORDER
     Dosage: 0.9 MG (1D), ORAL
     Route: 048
  4. PRAVASTATIN SODIUM [Suspect]
     Indication: ILL-DEFINED DISORDER
     Dosage: 10 MG (1D), ORAL
     Route: 048
  5. ENALAPRIL MALEATE [Suspect]
     Indication: ILL-DEFINED DISORDER
     Dosage: 5 MG (1D), ORAL
     Route: 048
  6. ALL OTHER THERAPEUTIC PRODUCTS [Concomitant]

REACTIONS (1)
  - INTERSTITIAL LUNG DISEASE [None]
